FAERS Safety Report 4710635-4 (Version None)
Quarter: 2005Q3

REPORT INFORMATION
  Report Type: 
  Country: None (occurrence: None)
  Receive Date: 20050707
  Receipt Date: 20050624
  Transmission Date: 20060218
  Serious: Yes (Hospitalization)
  Sender: FDA-Public Use
  Company Number: 2005079018

PATIENT
  Age: 74 Year
  Sex: Female

DRUGS (11)
  1. LITHIUM CARBONATE [Suspect]
     Indication: BIPOLAR DISORDER
     Dosage: 750 MG (250 MG, 3 IN 1 D)
  2. LEVOMEPROMAZINE (LEVOMEPROLAZINE) [Suspect]
     Indication: ILL-DEFINED DISORDER
     Dosage: 6.25 MG
  3. LISINOPRIL [Suspect]
     Indication: HYPERTENSION
     Dosage: 30 MG
  4. RISPERDAL [Suspect]
     Indication: ILL-DEFINED DISORDER
     Dosage: 0.5 MG (0.25 MG, 2 IN 1 D)
  5. ESCITALOPRAM OXALATE [Suspect]
     Indication: ILL-DEFINED DISORDER
     Dosage: 10 MG
  6. IRBESARTAN [Suspect]
     Indication: HYPERTENSION
     Dosage: 300 MG
  7. LORMETAZEPAM (LORMETAZEPAM) [Concomitant]
  8. METFORMIN HCL [Concomitant]
  9. FUROSEMIDE [Concomitant]
  10. REPAGLINIDE (REPAGLINIDE) [Concomitant]
  11. SPIRONOLACTONE [Concomitant]

REACTIONS (20)
  - AGITATION [None]
  - APATHY [None]
  - BLOOD CREATININE INCREASED [None]
  - CONFUSIONAL STATE [None]
  - CREATININE RENAL CLEARANCE DECREASED [None]
  - DEHYDRATION [None]
  - DIARRHOEA [None]
  - DRUG INTERACTION [None]
  - DYSARTHRIA [None]
  - GENERAL PHYSICAL HEALTH DETERIORATION [None]
  - GLASGOW COMA SCALE ABNORMAL [None]
  - LETHARGY [None]
  - NEUROTOXICITY [None]
  - OLIGURIA [None]
  - OVERDOSE [None]
  - RENAL IMPAIRMENT [None]
  - SOMNOLENCE [None]
  - THERAPEUTIC AGENT TOXICITY [None]
  - THERAPY NON-RESPONDER [None]
  - TREMOR [None]
